FAERS Safety Report 7237354-7 (Version None)
Quarter: 2011Q1

REPORT INFORMATION
  Report Type: 
  Country: None (occurrence: None)
  Receive Date: 20110121
  Receipt Date: 20110117
  Transmission Date: 20110831
  Serious: Yes (Hospitalization)
  Sender: FDA-Public Use
  Company Number: US-ROXANE LABORATORIES, INC.-2011-RO-00072RO

PATIENT
  Age: 4 Month
  Sex: Female

DRUGS (3)
  1. PREDNISONE [Suspect]
     Route: 048
  2. REGRANEX [Suspect]
     Indication: HAEMANGIOMA
     Route: 061
  3. PREDNISONE [Suspect]
     Indication: HAEMANGIOMA
     Route: 048

REACTIONS (3)
  - RESPIRATORY SYNCYTIAL VIRUS INFECTION [None]
  - PNEUMOMEDIASTINUM [None]
  - PNEUMOPERITONEUM [None]
